FAERS Safety Report 5280363-8 (Version None)
Quarter: 2007Q1

REPORT INFORMATION
  Report Type: 
  Country: None (occurrence: None)
  Receive Date: 20070326
  Receipt Date: 20070326
  Transmission Date: 20070707
  Serious: Yes (Other)
  Sender: FDA-Public Use
  Company Number: None

PATIENT
  Sex: Male

DRUGS (7)
  1. REVLIMID [Suspect]
     Indication: MULTIPLE MYELOMA
     Dosage: 15 MG QD PO
     Route: 048
     Dates: start: 20070102, end: 20070131
  2. AMITRIPTYLINE HCL [Concomitant]
  3. WARFARIN SODIUM [Concomitant]
  4. HYDROCHLOROTHIAZIDE [Concomitant]
  5. OMEPRAZOLE [Concomitant]
  6. FLOMAX [Concomitant]
  7. ANDRODERM [Concomitant]

REACTIONS (3)
  - FATIGUE [None]
  - NEUTROPENIA [None]
  - PROSTATITIS [None]
